FAERS Safety Report 16609155 (Version 3)
Quarter: 2019Q3

REPORT INFORMATION
  Report Type: Spontaneous
  Country: PL (occurrence: PL)
  Receive Date: 20190722
  Receipt Date: 20190805
  Transmission Date: 20191004
  Serious: Yes (Hospitalization, Other)
  Sender: FDA-Public Use
  Company Number: PL-PFIZER INC-2019310150

PATIENT
  Age: 45 Year
  Sex: Male

DRUGS (5)
  1. DOBUTAMINE [Suspect]
     Active Substance: DOBUTAMINE HYDROCHLORIDE
     Indication: BRADYCARDIA
     Dosage: UNK RECEIVED IN LARGE DOSES (HIGH DOSES)
     Route: 065
  2. ATROPINE. [Suspect]
     Active Substance: ATROPINE
     Indication: BRADYCARDIA
     Dosage: UNK
     Route: 065
  3. EPINEPHRINE. [Suspect]
     Active Substance: EPINEPHRINE
     Indication: BRADYCARDIA
     Dosage: UNK
     Route: 065
  4. NORADRENALINE [NOREPINEPHRINE] [Suspect]
     Active Substance: NOREPINEPHRINE
     Indication: BRADYCARDIA
     Dosage: UNK RECEIVED IN LARGE DOSES (HIGH DOSES)
     Route: 065
  5. DOPAMINE [Suspect]
     Active Substance: DOPAMINE HYDROCHLORIDE
     Indication: BRADYCARDIA
     Dosage: UNK RECEIVED IN LARGE DOSES (HIGH DOSES)
     Route: 065

REACTIONS (5)
  - Ventricular fibrillation [Recovered/Resolved]
  - Cardiogenic shock [Recovering/Resolving]
  - Pulmonary oedema [Recovering/Resolving]
  - Stress cardiomyopathy [Recovering/Resolving]
  - Loss of consciousness [Recovering/Resolving]
